FAERS Safety Report 6630297-9 (Version None)
Quarter: 2010Q1

REPORT INFORMATION
  Report Type: 
  Country: None (occurrence: None)
  Receive Date: 20100311
  Receipt Date: 20100303
  Transmission Date: 20100710
  Serious: Yes (Hospitalization)
  Sender: FDA-Public Use
  Company Number: PHHO2010TW03203

PATIENT
  Sex: Male
  Weight: 55.8 kg

DRUGS (7)
  1. AFINITOR [Suspect]
     Indication: HEPATIC NEOPLASM MALIGNANT
     Dosage: 7.5 MG, DAILY
     Route: 048
     Dates: start: 20091120, end: 20100216
  2. BISOPROLOL [Concomitant]
     Indication: PORTAL HYPERTENSION
  3. PANTOPRAZOLE [Concomitant]
     Indication: HAEMORRHAGE
  4. ENTECAVIR [Concomitant]
     Indication: HEPATITIS B
  5. LORAZEPAM [Concomitant]
     Indication: INSOMNIA
  6. METFORMIN [Concomitant]
     Indication: DIABETES MELLITUS
  7. GLIMEPIRIDE [Concomitant]
     Indication: DIABETES MELLITUS

REACTIONS (10)
  - ANAEMIA [None]
  - C-REACTIVE PROTEIN INCREASED [None]
  - DIARRHOEA [None]
  - GASTRIC HAEMORRHAGE [None]
  - HAEMORRHAGE [None]
  - MELAENA [None]
  - OCCULT BLOOD POSITIVE [None]
  - OESOPHAGEAL VARICEAL LIGATION [None]
  - PORTAL HYPERTENSIVE GASTROPATHY [None]
  - THROMBOCYTOPENIA [None]
